FAERS Safety Report 22993665 (Version 3)
Quarter: 2023Q4

REPORT INFORMATION
  Report Type: Report from Study
  Country: GB (occurrence: GB)
  Receive Date: 20230927
  Receipt Date: 20231122
  Transmission Date: 20240109
  Serious: Yes (Hospitalization)
  Sender: FDA-Public Use
  Company Number: GB-SERVIER-S23010951

PATIENT

DRUGS (8)
  1. CYCLIZINE [Concomitant]
     Active Substance: CYCLIZINE
     Indication: Prophylaxis of nausea and vomiting
     Dosage: UNK UNK, PRN
     Route: 048
     Dates: start: 20230823
  2. AMITRIPTYLINE [Concomitant]
     Active Substance: AMITRIPTYLINE
     Indication: Insomnia
     Dosage: UNK, PRN
     Route: 048
  3. BECLOMETHASONE [Concomitant]
     Active Substance: BECLOMETHASONE
     Indication: Rhinitis allergic
     Dosage: UNK UNK, QD
     Dates: start: 20230620
  4. CARVEDILOL [Concomitant]
     Active Substance: CARVEDILOL
     Indication: Wolff-Parkinson-White syndrome
     Dosage: UNK, QD
     Route: 048
     Dates: start: 20230620
  5. BECLOMETHASONE DIPROPIONATE [Concomitant]
     Active Substance: BECLOMETHASONE DIPROPIONATE
     Indication: Asthma
     Dosage: UNK, PRN
     Dates: start: 20230620
  6. FEXOFENADINE [Concomitant]
     Active Substance: FEXOFENADINE HYDROCHLORIDE
     Indication: Rhinitis allergic
     Dosage: UNK, QD
     Route: 048
     Dates: start: 20230620
  7. LOSARTAN [Concomitant]
     Active Substance: LOSARTAN
     Indication: Electrocardiogram abnormal
     Dosage: UNK, QD
     Route: 048
     Dates: start: 20230620
  8. DEXTRAN;HYPROMELLOSE [Concomitant]
     Indication: Rhinitis allergic
     Dosage: UNK, TID
     Route: 057
     Dates: start: 20230620

REACTIONS (1)
  - Diarrhoea [Recovered/Resolved]

NARRATIVE: CASE EVENT DATE: 20230904
